FAERS Safety Report 8267655-5 (Version None)
Quarter: 2012Q2

REPORT INFORMATION
  Report Type: 
  Country: None (occurrence: None)
  Receive Date: 20120409
  Receipt Date: 20120403
  Transmission Date: 20120825
  Serious: Yes (Other)
  Sender: FDA-Public Use
  Company Number: US-PFIZER INC-2012084652

PATIENT
  Sex: Female
  Weight: 65.8 kg

DRUGS (16)
  1. ACETYLSALICYLIC ACID [Concomitant]
     Dosage: 81 MG, DAILY
  2. DYAZIDE [Concomitant]
     Indication: HYPERTENSION
     Dosage: 37.5/25 MG, DAILY
     Route: 048
  3. ATENOLOL [Concomitant]
     Dosage: ONE AND A HALF TABLET OF 50 MG TWO
     Route: 048
  4. CALTRATE 600+D [Concomitant]
     Dosage: UNK, DAILY
  5. CLONIDINE [Concomitant]
     Indication: HYPERTENSION
     Dosage: 0.3 MG, 3X/DAY
  6. MICARDIS [Concomitant]
     Indication: CARDIAC DISORDER
     Dosage: 80 MG, DAILY
  7. VITAMIN D [Concomitant]
     Dosage: 1000 IU, DAILY
  8. ZETIA [Concomitant]
     Dosage: 10 MG, DAILY
  9. MULTI-VITAMINS [Concomitant]
     Dosage: UNK, DAILY
  10. VITAMIN B COMPLEX CAP [Concomitant]
     Dosage: UNK, DAILY
     Route: 048
  11. AROMASIN [Suspect]
     Indication: BREAST CANCER FEMALE
     Dosage: 25 MG, DAILY
     Dates: start: 20110201
  12. REPLENS [Suspect]
     Indication: VULVOVAGINAL DISCOMFORT
  13. MAGNESIUM OXIDE [Concomitant]
     Dosage: 400 MG, 2X/DAY
     Route: 048
  14. LIPITOR [Concomitant]
     Dosage: 40 MG, DAILY
     Route: 048
  15. REPLENS [Suspect]
     Indication: VULVAL HAEMORRHAGE
     Dosage: UNK
  16. POTASSIUM CHLORIDE [Concomitant]
     Dosage: 30 MEQ, 4X/DAY
     Route: 048

REACTIONS (6)
  - ABDOMINAL PAIN UPPER [None]
  - VULVAL HAEMORRHAGE [None]
  - DRUG INEFFECTIVE [None]
  - MUSCULOSKELETAL DISCOMFORT [None]
  - INSOMNIA [None]
  - VULVOVAGINAL DISCOMFORT [None]
